FAERS Safety Report 16765450 (Version 4)
Quarter: 2020Q1

REPORT INFORMATION
  Report Type: Spontaneous
  Country: BR (occurrence: BR)
  Receive Date: 20190903
  Receipt Date: 20200317
  Transmission Date: 20200409
  Serious: Yes (Other)
  Sender: FDA-Public Use
  Company Number: BR-GLAXOSMITHKLINE-BR2019GSK056329

PATIENT
  Age: 54 Year
  Sex: Female
  Weight: 77 kg

DRUGS (1)
  1. BENLYSTA [Suspect]
     Active Substance: BELIMUMAB
     Indication: SYSTEMIC LUPUS ERYTHEMATOSUS
     Dosage: UNK

REACTIONS (10)
  - Systemic lupus erythematosus [Unknown]
  - Pain [Unknown]
  - Cerebrovascular accident [Unknown]
  - Anxiety [Unknown]
  - Arthralgia [Unknown]
  - Dysphonia [Unknown]
  - Sensory loss [Unknown]
  - Inappropriate schedule of product administration [Unknown]
  - Fall [Unknown]
  - Therapy cessation [Unknown]

NARRATIVE: CASE EVENT DATE: 201908
